FAERS Safety Report 4366671-3 (Version None)
Quarter: 2004Q2

REPORT INFORMATION
  Report Type: 
  Country: None (occurrence: None)
  Receive Date: 20040527
  Receipt Date: 20040527
  Transmission Date: 20050107
  Serious: No
  Sender: FDA-Public Use
  Company Number: A03200400798

PATIENT
  Sex: Male

DRUGS (2)
  1. AVODART [Suspect]
     Indication: DRUG USE FOR UNKNOWN INDICATION
     Route: 048
  2. UROXATRAL [Suspect]
     Indication: DRUG USE FOR UNKNOWN INDICATION
     Dosage: 10MG PER DAY
     Route: 048

REACTIONS (1)
  - MENTAL IMPAIRMENT [None]
